FAERS Safety Report 4939141-9 (Version None)
Quarter: 2006Q1

REPORT INFORMATION
  Report Type: 
  Country: None (occurrence: None)
  Receive Date: 20060306
  Receipt Date: 20060222
  Transmission Date: 20060701
  Serious: Yes (Hospitalization)
  Sender: FDA-Public Use
  Company Number: 2006022518

PATIENT
  Age: 13 Year
  Sex: Female
  Weight: 51 kg

DRUGS (2)
  1. ALPRAZOLAM [Suspect]
     Indication: MOOD ALTERED
     Dosage: 0.8 MG (0.4 MG 2 IN 1 D) ORAL
     Route: 048
     Dates: start: 20060205, end: 20060206
  2. ALL OTHER THERAPEUTIC PRODUCTS [Suspect]
     Dosage: ORAL
     Route: 048
     Dates: start: 20060206, end: 20060206

REACTIONS (6)
  - DEPRESSED LEVEL OF CONSCIOUSNESS [None]
  - DIPLOPIA [None]
  - DIZZINESS [None]
  - FALL [None]
  - SOMATOFORM DISORDER [None]
  - SOMNOLENCE [None]
